FAERS Safety Report 14935252 (Version 6)
Quarter: 2019Q1

REPORT INFORMATION
  Report Type: Spontaneous
  Country: ES (occurrence: ES)
  Receive Date: 20180524
  Receipt Date: 20190211
  Transmission Date: 20190417
  Serious: Yes (Death, Congenital Anomaly, Other)
  Sender: FDA-Public Use
  Company Number: ES-TEVA-2018-ES-894464

PATIENT
  Age: 23 Year
  Sex: Male

DRUGS (15)
  1. ICLUSIG [Suspect]
     Active Substance: PONATINIB
     Dosage: AFTER HEMATOPOIETIC STEM CELL TRANSPLANTATION
     Route: 065
     Dates: start: 2014
  2. DOXORUBICIN HCL [Suspect]
     Active Substance: DOXORUBICIN HYDROCHLORIDE
     Indication: ACUTE LYMPHOCYTIC LEUKAEMIA RECURRENT
     Route: 065
     Dates: start: 20140415
  3. PONATINIB [Suspect]
     Active Substance: PONATINIB
     Dosage: 45 MG, QD REGIMEN 1, FIRST CYCLE
     Route: 065
     Dates: start: 20140415
  4. ICLUSIG [Suspect]
     Active Substance: PONATINIB
     Indication: ACUTE LYMPHOCYTIC LEUKAEMIA RECURRENT
     Dosage: 45 MILLIGRAM DAILY; FIRST CYCLE
     Route: 048
     Dates: start: 20140415
  5. THIOTEPA. [Suspect]
     Active Substance: THIOTEPA
     Indication: ACUTE LYMPHOCYTIC LEUKAEMIA RECURRENT
     Dosage: (4 CYCLES)
     Route: 065
     Dates: start: 20140928
  6. FLUDARABINE [Suspect]
     Active Substance: FLUDARABINE PHOSPHATE
     Indication: ACUTE LYMPHOCYTIC LEUKAEMIA RECURRENT
     Dosage: REGIMEN 1
     Route: 065
     Dates: start: 20140928
  7. METHOTREXATE SODIUM. [Suspect]
     Active Substance: METHOTREXATE SODIUM
     Indication: ACUTE LYMPHOCYTIC LEUKAEMIA RECURRENT
     Route: 065
     Dates: start: 2014
  8. VINCRISTINE [Suspect]
     Active Substance: VINCRISTINE
     Indication: ACUTE LYMPHOCYTIC LEUKAEMIA RECURRENT
     Route: 065
     Dates: start: 2014
  9. DEXAMETHASONE. [Suspect]
     Active Substance: DEXAMETHASONE
     Indication: ACUTE LYMPHOCYTIC LEUKAEMIA RECURRENT
     Dosage: SECOND CYCLE
     Route: 065
     Dates: start: 20140415
  10. BUSULPHAN [Suspect]
     Active Substance: BUSULFAN
     Indication: ACUTE LYMPHOCYTIC LEUKAEMIA RECURRENT
     Dosage: REGIMEN 1,
     Route: 065
     Dates: start: 20140928
  11. PONATINIB [Suspect]
     Active Substance: PONATINIB
     Route: 065
     Dates: start: 2014
  12. CYTARABINE. [Suspect]
     Active Substance: CYTARABINE
     Indication: ACUTE LYMPHOCYTIC LEUKAEMIA RECURRENT
     Dosage: REGIMEN 1, FIRST CYCLE
     Route: 065
     Dates: start: 20140415
  13. RITUXIMAB. [Suspect]
     Active Substance: RITUXIMAB
     Indication: PRODUCT USED FOR UNKNOWN INDICATION
     Dosage: REGIMEN 1, FIRST CYCLE
     Route: 065
  14. VINCRISTINE SULFATE. [Suspect]
     Active Substance: VINCRISTINE SULFATE
     Indication: ACUTE LYMPHOCYTIC LEUKAEMIA RECURRENT
     Route: 065
     Dates: start: 20140415
  15. GENOXAL [Suspect]
     Active Substance: CYCLOPHOSPHAMIDE
     Indication: ACUTE LYMPHOCYTIC LEUKAEMIA RECURRENT
     Dosage: SECOND CYCLE
     Route: 065
     Dates: start: 20140415

REACTIONS (7)
  - Epstein-Barr virus infection [Recovered/Resolved]
  - Multiple organ dysfunction syndrome [Fatal]
  - Autoimmune lymphoproliferative syndrome [Unknown]
  - Viral haemorrhagic cystitis [Unknown]
  - Acute lymphocytic leukaemia recurrent [Unknown]
  - Cytomegalovirus infection [Unknown]
  - Post transplant lymphoproliferative disorder [Recovered/Resolved]

NARRATIVE: CASE EVENT DATE: 20141015
